APPROVED DRUG PRODUCT: PREMARIN
Active Ingredient: ESTROGENS, CONJUGATED
Strength: 0.45MG
Dosage Form/Route: TABLET;ORAL
Application: N004782 | Product #006 | TE Code: AB
Applicant: WYETH PHARMACEUTICALS LLC
Approved: Jul 16, 2003 | RLD: Yes | RS: No | Type: RX